FAERS Safety Report 5760077-8 (Version None)
Quarter: 2008Q2

REPORT INFORMATION
  Report Type: 
  Country: None (occurrence: None)
  Receive Date: 20080605
  Receipt Date: 20080526
  Transmission Date: 20081010
  Serious: Yes (Other)
  Sender: FDA-Public Use
  Company Number: GB-ABBOTT-08P-167-0453684-00

PATIENT
  Age: 36 Year
  Sex: Male

DRUGS (5)
  1. NORVIR [Suspect]
     Indication: HIV INFECTION
     Dates: start: 20030101
  2. FLUTICASONE [Interacting]
     Indication: ASTHMA
     Dates: start: 20071201, end: 20080404
  3. SAQUINAVIR [Concomitant]
     Indication: HIV INFECTION
     Dates: start: 20030101
  4. TRUVADA [Concomitant]
     Indication: HIV INFECTION
     Dates: start: 20030101
  5. BACTRIM [Concomitant]
     Indication: PROPHYLAXIS
     Dates: start: 20030101

REACTIONS (4)
  - AGGRESSION [None]
  - DRUG INTERACTION [None]
  - PSYCHOTIC DISORDER [None]
  - SUICIDE ATTEMPT [None]
